FAERS Safety Report 9253865 (Version 2)
Quarter: 2013Q2

REPORT INFORMATION
  Report Type: Report from Study
  Country: AR (occurrence: AR)
  Receive Date: 20130425
  Receipt Date: 20130511
  Transmission Date: 20140414
  Serious: Yes (Other)
  Sender: FDA-Public Use
  Company Number: AR-ROCHE-1216976

PATIENT
  Sex: Male

DRUGS (1)
  1. LUCENTIS [Suspect]
     Indication: MACULOPATHY
     Dosage: MOST RECENT DOSE: 22/MAR/2013
     Route: 050

REACTIONS (2)
  - Maculopathy [Not Recovered/Not Resolved]
  - No therapeutic response [Unknown]
